FAERS Safety Report 23351292 (Version 2)
Quarter: 2024Q1

REPORT INFORMATION
  Report Type: Spontaneous
  Country: US (occurrence: US)
  Receive Date: 20231229
  Receipt Date: 20240112
  Transmission Date: 20240410
  Serious: Yes (Other)
  Sender: FDA-Public Use
  Company Number: US-NOVOPROD-1038700

PATIENT
  Sex: Female
  Weight: 58.966 kg

DRUGS (3)
  1. WEGOVY [Suspect]
     Active Substance: SEMAGLUTIDE
     Indication: Weight decreased
     Dosage: 13.5 IU, QW
     Route: 058
     Dates: start: 20230213, end: 20230224
  2. WEGOVY [Suspect]
     Active Substance: SEMAGLUTIDE
     Dosage: 15 IU, QW
     Route: 058
     Dates: start: 20230225, end: 20230303
  3. SYNTHROID [Concomitant]
     Active Substance: LEVOTHYROXINE SODIUM
     Indication: Autoimmune thyroiditis
     Route: 058

REACTIONS (5)
  - Amniotic fluid volume decreased [Unknown]
  - Postpartum haemorrhage [Unknown]
  - Premature delivery [Recovered/Resolved]
  - Maternal exposure during pregnancy [Recovered/Resolved]
  - Nausea [Recovered/Resolved]
